FAERS Safety Report 18556265 (Version 1)
Quarter: 2020Q4

REPORT INFORMATION
  Report Type: Spontaneous
  Country: GB (occurrence: GB)
  Receive Date: 20201128
  Receipt Date: 20201128
  Transmission Date: 20210114
  Serious: Yes (Life-Threatening, Other)
  Sender: FDA-Public Use
  Company Number: GB-009507513-2011GBR015279

PATIENT
  Age: 49 Year
  Sex: Female
  Weight: 180.5 kg

DRUGS (3)
  1. DOXAZOSIN MESYLATE. [Suspect]
     Active Substance: DOXAZOSIN MESYLATE
     Dosage: 4 MILLIGRAM
     Route: 048
     Dates: start: 20200913, end: 20200921
  2. LOSARTAN POTASSIUM. [Suspect]
     Active Substance: LOSARTAN POTASSIUM
     Dosage: 50 MILLIGRAM
     Route: 048
     Dates: start: 20200928, end: 20201015
  3. FELODIPINE. [Suspect]
     Active Substance: FELODIPINE
     Dosage: 5 MILLIGRAM
     Route: 048
     Dates: start: 20200923, end: 20200925

REACTIONS (3)
  - Dizziness [Not Recovered/Not Resolved]
  - Arthralgia [Not Recovered/Not Resolved]
  - Hypoglycaemia [Not Recovered/Not Resolved]

NARRATIVE: CASE EVENT DATE: 20200915
